FAERS Safety Report 23274134 (Version 2)
Quarter: 2024Q1

REPORT INFORMATION
  Report Type: Spontaneous
  Country: FR (occurrence: FR)
  Receive Date: 20231208
  Receipt Date: 20240216
  Transmission Date: 20240409
  Serious: Yes (Disabling)
  Sender: FDA-Public Use
  Company Number: None

PATIENT
  Age: 73 Year
  Sex: Male
  Weight: 77.4 kg

DRUGS (5)
  1. DEXAMETHASONE [Suspect]
     Active Substance: DEXAMETHASONE
     Indication: Plasma cell myeloma
     Dosage: 20 MG, BIW
     Route: 048
     Dates: start: 20210428
  2. DARZALEX [Suspect]
     Active Substance: DARATUMUMAB
     Indication: Plasma cell myeloma
     Dosage: 1800 MG, BIW, SOLUTION INJECTABLE
     Route: 058
     Dates: start: 20210428
  3. ELIQUIS [Suspect]
     Active Substance: APIXABAN
     Indication: Thrombosis prophylaxis
     Dosage: 5 MG, QD (1DF 2/J)
     Route: 048
     Dates: start: 20210428
  4. REVLIMID [Suspect]
     Active Substance: LENALIDOMIDE
     Indication: Plasma cell myeloma
     Dosage: 525 MG, QMO, (25MG 21 JOURS/MOIS) LAST DOSE: 15 MAR 2022
     Route: 048
     Dates: start: 20210428, end: 20220315
  5. LATANOPROST\TIMOLOL MALEATE [Concomitant]
     Active Substance: LATANOPROST\TIMOLOL MALEATE
     Indication: Product used for unknown indication
     Dosage: UNK
     Route: 065

REACTIONS (1)
  - Cataract [Recovered/Resolved with Sequelae]

NARRATIVE: CASE EVENT DATE: 20210801
